FAERS Safety Report 13585255 (Version 1)
Quarter: 2017Q2

REPORT INFORMATION
  Report Type: Spontaneous
  Country: US (occurrence: US)
  Receive Date: 20170526
  Receipt Date: 20170526
  Transmission Date: 20170830
  Serious: No
  Sender: FDA-Public Use
  Company Number: US-MALLINCKRODT-T201602790

PATIENT
  Sex: Female
  Weight: 45 kg

DRUGS (1)
  1. HYDROCODONE/ACETAMINOPHEN [Suspect]
     Active Substance: ACETAMINOPHEN\HYDROCODONE
     Indication: PAIN
     Dosage: 7.5/325 MG TABLET (UNKNOWN FREQUENCY)
     Route: 048

REACTIONS (4)
  - Pruritus generalised [Not Recovered/Not Resolved]
  - Product measured potency issue [Unknown]
  - Generalised erythema [Not Recovered/Not Resolved]
  - Drug ineffective [Unknown]

NARRATIVE: CASE EVENT DATE: 2016
